FAERS Safety Report 5120036-5 (Version None)
Quarter: 2006Q3

REPORT INFORMATION
  Report Type: 
  Country: None (occurrence: None)
  Receive Date: 20060929
  Receipt Date: 20060918
  Transmission Date: 20061208
  Serious: Yes (Hospitalization)
  Sender: FDA-Public Use
  Company Number: 2006072196

PATIENT
  Age: 43 Year
  Sex: Female
  Weight: 54 kg

DRUGS (2)
  1. SUTENT [Suspect]
     Indication: HEPATIC NEOPLASM MALIGNANT NON-RESECTABLE
     Dosage: 50 MG (50 MG, 4 WEEKS - INTERVAL:  2 WEEKS), ORAL
     Route: 048
     Dates: start: 20060505, end: 20060601
  2. URSODIOL (URSODEOXYCHOLIC ACID) [Concomitant]

REACTIONS (4)
  - ANAEMIA [None]
  - PELVIC PAIN [None]
  - PERITONEAL EFFUSION [None]
  - PERITONEAL HAEMORRHAGE [None]
